FAERS Safety Report 9134932 (Version 2)
Quarter: 2013Q1

REPORT INFORMATION
  Report Type: Spontaneous
  Country: JP (occurrence: JP)
  Receive Date: 20130304
  Receipt Date: 20130311
  Transmission Date: 20140127
  Serious: Yes (Life-Threatening, Hospitalization, Other)
  Sender: FDA-Public Use
  Company Number: JP-PFIZER INC-2013070981

PATIENT
  Age: 71 Year
  Sex: Male
  Weight: 55 kg

DRUGS (8)
  1. SUTENT [Suspect]
     Indication: PANCREATIC NEUROENDOCRINE TUMOUR
     Dosage: 37.5 MG, 1X/DAY
     Route: 048
     Dates: start: 20121123, end: 20121210
  2. DECADRON [Concomitant]
     Indication: PROSTATE CANCER
     Dosage: 1 MG, 2X/DAY
     Route: 048
     Dates: start: 20080711
  3. LEUPLIN [Concomitant]
     Indication: PROSTATE CANCER
     Dosage: 3.75 G, ONCE IN 4 WEEKS
     Route: 058
  4. ZOMETA [Concomitant]
     Indication: PROSTATE CANCER
     Dosage: 3.3 MG, ONCE IN 4 WEEKS
     Route: 041
  5. PROTECADIN [Concomitant]
     Dosage: 10 MG, 2X/DAY
     Route: 048
  6. LASIX [Concomitant]
     Dosage: 20 MG, 1X/DAY
     Route: 048
  7. URSO [Concomitant]
     Dosage: 200 MG, 3X/DAY
     Route: 048
     Dates: start: 20121027
  8. SANDOSTATIN [Concomitant]
     Indication: PRIMITIVE NEUROECTODERMAL TUMOUR
     Dosage: 30 MG, ONCE IN 4 WEEKS
     Route: 030
     Dates: start: 20121122

REACTIONS (3)
  - Liver abscess [Recovered/Resolved]
  - Platelet count decreased [Recovered/Resolved]
  - Stomatitis [Recovered/Resolved]
